FAERS Safety Report 8319109-5 (Version None)
Quarter: 2012Q2

REPORT INFORMATION
  Report Type: 
  Country: None (occurrence: None)
  Receive Date: 20120427
  Receipt Date: 20120424
  Transmission Date: 20120825
  Serious: Yes (Disabling)
  Sender: FDA-Public Use
  Company Number: US-MERCK-1203USA01213

PATIENT
  Age: 7 Year

DRUGS (5)
  1. ADVAIR DISKUS 100/50 [Concomitant]
     Route: 065
     Dates: end: 20120404
  2. ALBUTEROL [Concomitant]
     Route: 065
  3. SINGULAIR [Suspect]
     Indication: ASTHMA
     Route: 048
     Dates: start: 20110302, end: 20120404
  4. ZYRTEC [Concomitant]
     Route: 065
  5. QVAR 40 [Concomitant]
     Route: 065

REACTIONS (2)
  - INTERSTITIAL LUNG DISEASE [None]
  - INSOMNIA [None]
